FAERS Safety Report 16144842 (Version 1)
Quarter: 2019Q2

REPORT INFORMATION
  Report Type: Spontaneous
  Country: GB (occurrence: GB)
  Receive Date: 20190402
  Receipt Date: 20190402
  Transmission Date: 20190711
  Serious: No
  Sender: FDA-Public Use
  Company Number: GB-LUPIN PHARMACEUTICALS INC.-2018-05796

PATIENT
  Age: 28 Year
  Sex: Male
  Weight: 76.2 kg

DRUGS (1)
  1. SERTRALINE [Suspect]
     Active Substance: SERTRALINE HYDROCHLORIDE
     Indication: DEPRESSION
     Dosage: 1 DF, QD
     Route: 048
     Dates: start: 20180203

REACTIONS (4)
  - Penile pain [Unknown]
  - Painful erection [Unknown]
  - Spontaneous penile erection [Unknown]
  - Erection increased [Recovered/Resolved]

NARRATIVE: CASE EVENT DATE: 20180203
